FAERS Safety Report 19466030 (Version 3)
Quarter: 2021Q3

REPORT INFORMATION
  Report Type: Report from Study
  Country: US (occurrence: US)
  Receive Date: 20210626
  Receipt Date: 20210909
  Transmission Date: 20211014
  Serious: No
  Sender: FDA-Public Use
  Company Number: NVSC2021US132405

PATIENT
  Sex: Female

DRUGS (2)
  1. INSULIN [Suspect]
     Active Substance: INSULIN NOS
     Indication: PRODUCT USED FOR UNKNOWN INDICATION
     Dosage: UNK
     Route: 065
  2. ENTRESTO [Suspect]
     Active Substance: SACUBITRIL\VALSARTAN
     Indication: CARDIAC FAILURE CONGESTIVE
     Dosage: 1 DF, BID(97/103 MG)
     Route: 048
     Dates: start: 202104

REACTIONS (5)
  - Weight decreased [Unknown]
  - Dizziness [Unknown]
  - Mobility decreased [Unknown]
  - Clumsiness [Unknown]
  - Gait disturbance [Unknown]
